FAERS Safety Report 21004031 (Version 1)
Quarter: 2022Q2

REPORT INFORMATION
  Report Type: Spontaneous
  Country: US (occurrence: None)
  Receive Date: 20220624
  Receipt Date: 20220624
  Transmission Date: 20220721
  Serious: No
  Sender: FDA-Public Use
  Company Number: None

PATIENT
  Sex: 0

DRUGS (2)
  1. PHENYLEPHRINE [Suspect]
     Active Substance: PHENYLEPHRINE HYDROCHLORIDE
     Indication: Product used for unknown indication
     Route: 047
  2. TROPICAMIDE [Suspect]
     Active Substance: TROPICAMIDE
     Route: 047

REACTIONS (3)
  - Product packaging confusion [None]
  - Circumstance or information capable of leading to medication error [None]
  - Wrong drug [None]

NARRATIVE: CASE EVENT DATE: 20220623
